FAERS Safety Report 6440590-0 (Version None)
Quarter: 2009Q4

REPORT INFORMATION
  Report Type: 
  Country: None (occurrence: None)
  Receive Date: 20091113
  Receipt Date: 20091106
  Transmission Date: 20100525
  Serious: Yes (Hospitalization)
  Sender: FDA-Public Use
  Company Number: JP-MERCK-0910USA02685

PATIENT
  Age: 74 Year
  Sex: Male
  Weight: 61 kg

DRUGS (10)
  1. DECADRON [Suspect]
     Indication: PROSTATE CANCER
     Route: 048
     Dates: start: 20091015, end: 20091021
  2. DECADRON [Suspect]
     Route: 048
     Dates: start: 20000101, end: 20091014
  3. HARNAL [Concomitant]
     Indication: BENIGN PROSTATIC HYPERPLASIA
     Route: 048
  4. TRANSAMIN [Concomitant]
     Indication: HAEMORRHAGE SUBCUTANEOUS
     Route: 048
     Dates: start: 20090101
  5. BIOFERMIN [Concomitant]
     Indication: DISBACTERIOSIS
     Route: 048
  6. EVAMYL [Concomitant]
     Indication: INSOMNIA
     Route: 048
  7. PURSENNID [Concomitant]
     Indication: CONSTIPATION
     Route: 048
  8. MERISLON [Concomitant]
     Indication: DIZZINESS
     Route: 048
  9. MERISLON [Concomitant]
     Route: 048
     Dates: start: 20000101
  10. MUCOSTA [Concomitant]
     Indication: GASTRITIS
     Route: 048

REACTIONS (1)
  - PULMONARY EMBOLISM [None]
